FAERS Safety Report 15475520 (Version 3)
Quarter: 2019Q1

REPORT INFORMATION
  Report Type: Spontaneous
  Country: US (occurrence: US)
  Receive Date: 20181008
  Receipt Date: 20190208
  Transmission Date: 20190417
  Serious: Yes (Hospitalization, Other)
  Sender: FDA-Public Use
  Company Number: US-DSJP-DSU-2016-142247

PATIENT

DRUGS (2)
  1. BENICAR [Suspect]
     Active Substance: OLMESARTAN MEDOXOMIL
     Indication: PRODUCT USED FOR UNKNOWN INDICATION
     Dosage: 20 MG
     Dates: start: 2012
  2. BENICAR [Suspect]
     Active Substance: OLMESARTAN MEDOXOMIL
     Dosage: UNK

REACTIONS (11)
  - Large intestine polyp [Unknown]
  - Barrett^s oesophagus [Unknown]
  - Gastrooesophageal reflux disease [Unknown]
  - Haemorrhoids [Unknown]
  - Pancreatitis acute [Recovering/Resolving]
  - Gastrointestinal haemorrhage [Unknown]
  - Gastric ulcer [Unknown]
  - Diverticulitis [Unknown]
  - Rectal polyp [Recovered/Resolved]
  - Sprue-like enteropathy [Not Recovered/Not Resolved]
  - Hiatus hernia [Unknown]

NARRATIVE: CASE EVENT DATE: 2013
